FAERS Safety Report 7551097-1 (Version None)
Quarter: 2011Q2

REPORT INFORMATION
  Report Type: 
  Country: None (occurrence: None)
  Receive Date: 20110616
  Receipt Date: 20110605
  Transmission Date: 20111010
  Serious: Yes (Hospitalization, Other)
  Sender: FDA-Public Use
  Company Number: BE-NOVOPROD-328485

PATIENT
  Age: 79 Year
  Sex: Female
  Weight: 63 kg

DRUGS (6)
  1. VICTOZA [Suspect]
     Indication: TYPE 2 DIABETES MELLITUS
     Dosage: 0.6 MG, QD
     Route: 065
     Dates: start: 20110405, end: 20110511
  2. METFORMIN HCL [Concomitant]
     Dosage: 1700 MG, QD
     Route: 048
     Dates: start: 20110405
  3. EXELON [Concomitant]
     Dosage: 4.6 MG, QD
     Route: 062
     Dates: start: 20110405
  4. TELMISARTAN [Concomitant]
     Dosage: 1 TAB, QD
     Route: 048
  5. GLICLAZIDE [Concomitant]
     Dosage: 60 MG, QD
     Route: 048
     Dates: start: 20110405
  6. ASAFLOW [Concomitant]
     Dosage: 80 MG, QD
     Route: 048

REACTIONS (1)
  - ARTERITIS [None]
